FAERS Safety Report 8062174-3 (Version None)
Quarter: 2012Q1

REPORT INFORMATION
  Report Type: 
  Country: None (occurrence: None)
  Receive Date: 20120120
  Receipt Date: 20120120
  Transmission Date: 20120608
  Serious: Yes (Other)
  Sender: FDA-Public Use
  Company Number: None

PATIENT
  Age: 20 Year
  Sex: Female
  Weight: 68.0396 kg

DRUGS (2)
  1. DROSPIRENONE AND ETHINYL ESTRADIOL [Suspect]
     Indication: ACNE
     Dosage: ONE TAB DAILY
  2. DROSPIRENONE AND ETHINYL ESTRADIOL [Suspect]
     Indication: CONTRACEPTION
     Dosage: ONE TAB DAILY

REACTIONS (4)
  - PRODUCT FORMULATION ISSUE [None]
  - HEADACHE [None]
  - ACNE [None]
  - CONDITION AGGRAVATED [None]
